FAERS Safety Report 8845021 (Version 2)
Quarter: 2012Q4

REPORT INFORMATION
  Report Type: Spontaneous
  Country: US (occurrence: None)
  Receive Date: 20121001
  Receipt Date: 20121026
  Transmission Date: 20130627
  Serious: Yes (Death, Hospitalization)
  Sender: FDA-Public Use
  Company Number: 2012PROUSA02006

PATIENT
  Age: 78 Year
  Sex: Male

DRUGS (3)
  1. PROVENGE (SIPULEUCEL-T) SUSPENSION, 250ML [Suspect]
     Indication: PROSTATE CANCER METASTATIC
     Dosage: 250 ml, single, intravenous
     Route: 042
     Dates: start: 20120813, end: 20120813
  2. PROVENGE (SIPULEUCEL-T) SUSPENSION, 250ML [Suspect]
     Indication: PROSTATE CANCER METASTATIC
     Dosage: 250 ml, single, intravenous
     Route: 042
     Dates: start: 20120827, end: 20120827
  3. PROVENGE (SIPULEUCEL-T) SUSPENSION, 250ML [Suspect]
     Indication: PROSTATE CANCER METASTATIC
     Dosage: 250 ml, single, intravenous
     Route: 042
     Dates: start: 20120910, end: 20120910

REACTIONS (1)
  - Pulmonary embolism [None]
